FAERS Safety Report 7872432 (Version 3)
Quarter: 2014Q1

REPORT INFORMATION
  Report Type: Spontaneous
  Country: US (occurrence: US)
  Receive Date: 20110325
  Receipt Date: 20140131
  Transmission Date: 20141002
  Serious: Yes (Other)
  Sender: FDA-Public Use
  Company Number: US-BAYER-2011-024450

PATIENT
  Age: 34 Year
  Sex: Female
  Weight: 72.56 kg

DRUGS (6)
  1. YASMIN [Suspect]
     Indication: ORAL CONTRACEPTION
  2. SOMA [Concomitant]
     Indication: BACK PAIN
  3. OXYCODONE [Concomitant]
     Indication: BACK PAIN
  4. TRAMADOL [Concomitant]
     Indication: BACK PAIN
  5. METFORMIN [Concomitant]
     Dosage: 500 MG, UNK
     Route: 048
     Dates: start: 20050418
  6. LEXAPRO [Concomitant]
     Dosage: 10 MG, UNK
     Route: 048
     Dates: start: 20050702

REACTIONS (4)
  - Cholecystitis acute [None]
  - Gallbladder disorder [Unknown]
  - Pain [Unknown]
  - Injury [None]
